FAERS Safety Report 14790788 (Version 1)
Quarter: 2018Q2

REPORT INFORMATION
  Report Type: Spontaneous
  Country: US (occurrence: US)
  Receive Date: 20180423
  Receipt Date: 20180423
  Transmission Date: 20180711
  Serious: No
  Sender: FDA-Public Use
  Company Number: US-BIOGEN-2018BI00557576

PATIENT
  Sex: Female

DRUGS (2)
  1. PLEGRIDY [Suspect]
     Active Substance: PEGINTERFERON BETA-1A
     Indication: MULTIPLE SCLEROSIS
     Route: 058
     Dates: start: 201711, end: 201712
  2. PLEGRIDY [Suspect]
     Active Substance: PEGINTERFERON BETA-1A
     Dosage: MAINTENANCE DOSE
     Route: 058
     Dates: start: 201712

REACTIONS (1)
  - Influenza like illness [Recovered/Resolved]
